FAERS Safety Report 5073130-1 (Version None)
Quarter: 2006Q3

REPORT INFORMATION
  Report Type: 
  Country: None (occurrence: None)
  Receive Date: 20060711
  Receipt Date: 20060523
  Transmission Date: 20061208
  Serious: No
  Sender: FDA-Public Use
  Company Number: 2006S1000104

PATIENT
  Age: 65 Year
  Sex: Female
  Weight: 136.4 kg

DRUGS (10)
  1. CUBICIN [Suspect]
     Indication: STAPHYLOCOCCAL OSTEOMYELITIS
     Dosage: 500 MG;Q48H;IV
     Route: 042
     Dates: start: 20060512, end: 20060522
  2. INSULIN [Concomitant]
  3. FUROSEMIDE [Concomitant]
  4. K-DUR 10 [Concomitant]
  5. TOPROL-XL [Concomitant]
  6. VALSARTAN [Concomitant]
  7. EZETIMIBE [Concomitant]
  8. SIMVASTATIN [Concomitant]
  9. NEURONTIN [Concomitant]
  10. VANCOMYCIN [Concomitant]

REACTIONS (1)
  - BLOOD CREATINE PHOSPHOKINASE INCREASED [None]
